FAERS Safety Report 21300001 (Version 1)
Quarter: 2022Q3

REPORT INFORMATION
  Report Type: Spontaneous
  Country: US (occurrence: US)
  Receive Date: 20220906
  Receipt Date: 20220906
  Transmission Date: 20221026
  Serious: No
  Sender: FDA-Public Use
  Company Number: US-ALNYLAM PHARMACEUTICALS, INC.-ALN-2022-002883

PATIENT

DRUGS (4)
  1. OXLUMO [Suspect]
     Active Substance: LUMASIRAN
     Indication: Product used for unknown indication
     Dosage: 175.8 MILLIGRAM, MONTHLY
     Route: 058
     Dates: start: 20220606
  2. OXLUMO [Suspect]
     Active Substance: LUMASIRAN
     Dosage: 175.8 MILLIGRAM, MONTHLY
     Route: 058
     Dates: start: 20220802
  3. VITAMIN B6 [Concomitant]
     Active Substance: PYRIDOXINE HYDROCHLORIDE
     Indication: Product used for unknown indication
  4. SODIUM CITRATE [Concomitant]
     Active Substance: SODIUM CITRATE
     Indication: Product used for unknown indication

REACTIONS (4)
  - Injection site erythema [Unknown]
  - Injection site rash [Not Recovered/Not Resolved]
  - Dermatitis contact [Unknown]
  - Injection site vesicles [Unknown]
